FAERS Safety Report 8728056 (Version 2)
Quarter: 2012Q4

REPORT INFORMATION
  Report Type: 
  Country: AR (occurrence: AR)
  Receive Date: 20120817
  Receipt Date: 20120917
  Transmission Date: 20130627
  Serious: Yes (Hospitalization)
  Sender: FDA-Public Use
  Company Number: AR-AMGEN-ARGSP2012051465

PATIENT
  Age: 46 Year
  Sex: Female

DRUGS (4)
  1. ENBREL [Suspect]
     Indication: RHEUMATOID ARTHRITIS
     Dosage: 50 mg, weekly
     Route: 058
     Dates: start: 20070428, end: 201206
  2. ACETAMINOPHEN [Concomitant]
     Dosage: UNK
  3. OMEPRAZOL                          /00661201/ [Concomitant]
     Dosage: UNK
  4. EVOQUIN [Concomitant]
     Dosage: UNK

REACTIONS (1)
  - Pneumonia [Recovered/Resolved]
